FAERS Safety Report 22087902 (Version 1)
Quarter: 2023Q1

REPORT INFORMATION
  Report Type: Other
  Country: US (occurrence: None)
  Receive Date: 20230313
  Receipt Date: 20230313
  Transmission Date: 20230418
  Serious: Yes (Other)
  Sender: FDA-Public Use
  Company Number: US-ROCHE-3297790

PATIENT
  Age: 49 Year
  Sex: Male

DRUGS (1)
  1. OCREVUS [Suspect]
     Active Substance: OCRELIZUMAB
     Indication: Relapsing-remitting multiple sclerosis
     Dosage: YES
     Route: 042
     Dates: start: 2020

REACTIONS (11)
  - Hyperaesthesia teeth [Recovered/Resolved]
  - Loose tooth [Recovered/Resolved]
  - Tooth infection [Recovered/Resolved]
  - Sepsis [Recovered/Resolved]
  - Dizziness [Not Recovered/Not Resolved]
  - Muscular weakness [Not Recovered/Not Resolved]
  - Toothache [Recovered/Resolved]
  - Abdominal distension [Recovered/Resolved]
  - Thyroid disorder [Unknown]
  - Gait disturbance [Recovered/Resolved]
  - Discharge [Recovered/Resolved]

NARRATIVE: CASE EVENT DATE: 20200101
